FAERS Safety Report 20573700 (Version 3)
Quarter: 2022Q2

REPORT INFORMATION
  Report Type: Report from Study
  Country: US (occurrence: US)
  Receive Date: 20220309
  Receipt Date: 20220427
  Transmission Date: 20220721
  Serious: No
  Sender: FDA-Public Use
  Company Number: US-BEH-2022143035

PATIENT
  Age: 50 Year
  Sex: Female

DRUGS (1)
  1. HIZENTRA [Suspect]
     Active Substance: HUMAN IMMUNOGLOBULIN G
     Indication: Primary immunodeficiency syndrome
     Dosage: 13 GRAM, QW
     Route: 058
     Dates: start: 20220222

REACTIONS (10)
  - Infusion site erythema [Unknown]
  - Infusion site pain [Unknown]
  - Swelling [Unknown]
  - Constipation [Unknown]
  - Abdominal distension [Unknown]
  - Pruritus [Unknown]
  - Urine odour abnormal [Unknown]
  - Fatigue [Unknown]
  - Asthenia [Unknown]
  - Hunger [Unknown]

NARRATIVE: CASE EVENT DATE: 20220201
